FAERS Safety Report 5276355-5 (Version None)
Quarter: 2007Q1

REPORT INFORMATION
  Report Type: 
  Country: None (occurrence: None)
  Receive Date: 20070326
  Receipt Date: 20070314
  Transmission Date: 20070707
  Serious: Yes (Other)
  Sender: FDA-Public Use
  Company Number: US-PFIZER INC-2007021387

PATIENT
  Sex: Male
  Weight: 102.1 kg

DRUGS (2)
  1. VIAGRA [Suspect]
     Indication: ERECTILE DYSFUNCTION
  2. CLONIDINE [Concomitant]

REACTIONS (4)
  - EYE PRURITUS [None]
  - SKIN LESION [None]
  - VISION BLURRED [None]
  - VISUAL FIELD DEFECT [None]
